FAERS Safety Report 13051632 (Version 1)
Quarter: 2016Q4

REPORT INFORMATION
  Report Type: Spontaneous
  Country: FR (occurrence: FR)
  Receive Date: 20161221
  Receipt Date: 20161221
  Transmission Date: 20170207
  Serious: Yes (Life-Threatening)
  Sender: FDA-Public Use
  Company Number: FR-PFIZER INC-2016585846

PATIENT
  Age: 84 Year
  Sex: Male

DRUGS (8)
  1. PARACETAMOL [Interacting]
     Active Substance: ACETAMINOPHEN
     Dosage: 1 G, 3X/DAY
     Route: 048
     Dates: start: 20160804
  2. BROMAZEPAM [Concomitant]
     Active Substance: BROMAZEPAM
     Dosage: UNK
     Route: 048
     Dates: start: 20160804
  3. NEBIVOLOL. [Concomitant]
     Active Substance: NEBIVOLOL
     Dosage: 53 MG, 1X/DAY
     Route: 048
     Dates: start: 20160804
  4. TAHOR [Suspect]
     Active Substance: ATORVASTATIN CALCIUM
     Indication: HYPERCHOLESTEROLAEMIA
     Dosage: 40 MG, 1X/DAY
     Route: 048
     Dates: start: 20160804
  5. ADENURIC [Concomitant]
     Active Substance: FEBUXOSTAT
     Dosage: 120 MG, 1X/DAY
     Route: 048
     Dates: start: 20160804
  6. NORSET [Concomitant]
     Active Substance: MIRTAZAPINE
     Dosage: 15 MG, 2X/DAY
     Route: 048
     Dates: start: 20160804
  7. PREVISCAN /00789001/ [Interacting]
     Active Substance: FLUINDIONE
     Dosage: 20 MG, 1X/DAY
     Route: 048
     Dates: start: 20160804, end: 20160831
  8. PARIET [Concomitant]
     Active Substance: RABEPRAZOLE SODIUM
     Dosage: 20 MG, 1X/DAY
     Route: 048
     Dates: start: 20160804

REACTIONS (3)
  - Subdural haematoma [Recovering/Resolving]
  - Drug interaction [Recovering/Resolving]
  - Confusional state [Recovering/Resolving]

NARRATIVE: CASE EVENT DATE: 20160830
